FAERS Safety Report 4379823-3 (Version None)
Quarter: 2004Q2

REPORT INFORMATION
  Report Type: 
  Country: None (occurrence: None)
  Receive Date: 20040614
  Receipt Date: 20040601
  Transmission Date: 20050107
  Serious: Yes (Disabling, Other)
  Sender: FDA-Public Use
  Company Number: 2004032843

PATIENT
  Sex: Male

DRUGS (1)
  1. NEURONTIN [Suspect]
     Indication: DIABETIC NEUROPATHY
     Dosage: ORAL
     Route: 048

REACTIONS (8)
  - ANOREXIA [None]
  - BLINDNESS [None]
  - CONDITION AGGRAVATED [None]
  - DIABETES MELLITUS [None]
  - EXERCISE LACK OF [None]
  - FATIGUE [None]
  - RETINOPATHY [None]
  - SOMNOLENCE [None]
